FAERS Safety Report 5818546-8 (Version None)
Quarter: 2008Q3

REPORT INFORMATION
  Report Type: 
  Country: None (occurrence: None)
  Receive Date: 20080718
  Receipt Date: 20080709
  Transmission Date: 20090109
  Serious: Yes (Death, Hospitalization)
  Sender: FDA-Public Use
  Company Number: ADE2008-0247

PATIENT
  Age: 48 Year
  Sex: Male
  Weight: 118 kg

DRUGS (5)
  1. SERTRALINE [Suspect]
     Indication: DEPRESSION
     Dosage: 100MG
     Dates: start: 20060314, end: 20060728
  2. ATORVASTATIN CALCIUM [Suspect]
     Indication: BLOOD CHOLESTEROL INCREASED
     Dosage: 40 MG, ORAL
     Route: 048
     Dates: start: 20050101, end: 20060728
  3. AQUETIAPINE [Suspect]
     Indication: SCHIZOPHRENIA
     Dosage: 1000MG, ORAL
     Route: 048
     Dates: start: 20050101, end: 20060728
  4. UNSPECIFIED DRUGS [Suspect]
  5. ARIPIPRAZOLE [Concomitant]

REACTIONS (6)
  - ACUTE HEPATIC FAILURE [None]
  - DRUG LEVEL BELOW THERAPEUTIC [None]
  - HEPATIC STEATOSIS [None]
  - OVERDOSE [None]
  - PULMONARY CONGESTION [None]
  - PULMONARY OEDEMA [None]
